FAERS Safety Report 18308363 (Version 1)
Quarter: 2020Q3

REPORT INFORMATION
  Report Type: Spontaneous
  Country: US (occurrence: US)
  Receive Date: 20200924
  Receipt Date: 20200924
  Transmission Date: 20201103
  Serious: No
  Sender: FDA-Public Use
  Company Number: US-BAYER-2020-199807

PATIENT
  Sex: Female

DRUGS (2)
  1. HYDROXYPROGESTRONE [Concomitant]
  2. ESTRADIOL. [Suspect]
     Active Substance: ESTRADIOL

REACTIONS (1)
  - Product adhesion issue [None]
